FAERS Safety Report 9520872 (Version 1)
Quarter: 2013Q1

REPORT INFORMATION
  Report Type: Spontaneous
  Country: US (occurrence: None)
  Receive Date: 20130305
  Receipt Date: 20130305
  Transmission Date: 20140127
  Serious: Yes (Other)
  Sender: FDA-Public Use
  Company Number: 163-21880-12101044

PATIENT
  Age: 85 Year
  Sex: Male

DRUGS (5)
  1. REVLIMID [Suspect]
     Indication: MYELODYSPLASTIC SYNDROME
     Dosage: 5 MG, 21 IN 21 D, PO
     Route: 048
     Dates: start: 20120919
  2. CITALOPRAM HYDROBROIDE (CITALOPRAM HYDROBROMIDE) (UNKNOWN) [Concomitant]
  3. IPRATROPIUM/ALBUTEROL (COMBIVENT) (UNKNOWN)? [Concomitant]
  4. OMEPRAZOLE (OMEPRAZOLE) (UNKNOWN) [Concomitant]
  5. CLONAZEPAM (CLONAZEPAM) (UNKNOWN) [Concomitant]

REACTIONS (2)
  - Pancytopenia [None]
  - Balance disorder [None]
